FAERS Safety Report 4888712-7 (Version None)
Quarter: 2005Q4

REPORT INFORMATION
  Report Type: 
  Country: None (occurrence: None)
  Receive Date: 20051215
  Receipt Date: 20041210
  Transmission Date: 20060501
  Serious: Yes (Other)
  Sender: FDA-Public Use
  Company Number: 2004114412

PATIENT
  Age: 67 Year
  Sex: Female
  Weight: 81.6475 kg

DRUGS (3)
  1. BEXTRA [Suspect]
     Indication: BACK DISORDER
     Dosage: 20 MG (20 MG, QD, INTEVAL: EVERY DAY), ORAL
     Route: 048
     Dates: start: 20040414, end: 20040417
  2. THYROID TAB [Concomitant]
  3. PREMARIN [Concomitant]

REACTIONS (7)
  - ARTERIAL OCCLUSIVE DISEASE [None]
  - ASTHENIA [None]
  - BLOOD PRESSURE FLUCTUATION [None]
  - CHEST DISCOMFORT [None]
  - DYSPNOEA [None]
  - HYPERTENSION [None]
  - MYOCARDIAL INFARCTION [None]
